FAERS Safety Report 5953080-6 (Version None)
Quarter: 2008Q4

REPORT INFORMATION
  Report Type: 
  Country: None (occurrence: None)
  Receive Date: 20081114
  Receipt Date: 20080226
  Transmission Date: 20090506
  Serious: No
  Sender: FDA-Public Use
  Company Number: US-BRISTOL-MYERS SQUIBB COMPANY-14092340

PATIENT
  Age: 65 Year
  Sex: Female
  Weight: 67 kg

DRUGS (6)
  1. GLUCOPHAGE XR [Suspect]
     Dates: start: 20080101
  2. GLUCOPHAGE [Suspect]
     Indication: DIABETES MELLITUS
  3. AMARYL [Suspect]
  4. TENORMIN [Concomitant]
  5. CARDIZEM [Concomitant]
  6. TEVETEN [Concomitant]

REACTIONS (2)
  - DYSPEPSIA [None]
  - FLATULENCE [None]
